FAERS Safety Report 11741600 (Version 1)
Quarter: 2015Q4

REPORT INFORMATION
  Report Type: Spontaneous
  Country: GB (occurrence: GB)
  Receive Date: 20151116
  Receipt Date: 20151116
  Transmission Date: 20160304
  Serious: Yes (Death, Hospitalization)
  Sender: FDA-Public Use
  Company Number: GB-ROCHE-1659819

PATIENT
  Age: 74 Year
  Sex: Female

DRUGS (4)
  1. DEXAMETHASONE. [Concomitant]
     Active Substance: DEXAMETHASONE
     Indication: STEM CELL TRANSPLANT
     Route: 065
     Dates: start: 20140917, end: 20141006
  2. CISPLATIN. [Concomitant]
     Active Substance: CISPLATIN
     Indication: STEM CELL TRANSPLANT
     Route: 065
     Dates: start: 20140917, end: 20141006
  3. RITUXIMAB [Suspect]
     Active Substance: RITUXIMAB
     Indication: STEM CELL TRANSPLANT
     Route: 042
     Dates: start: 20140917, end: 20141006
  4. GEMCITABINE [Concomitant]
     Active Substance: GEMCITABINE\GEMCITABINE HYDROCHLORIDE
     Indication: STEM CELL TRANSPLANT
     Route: 065
     Dates: start: 20140917, end: 20141006

REACTIONS (5)
  - Central nervous system infection [Fatal]
  - Urinary tract infection [Unknown]
  - Progressive multifocal leukoencephalopathy [Not Recovered/Not Resolved]
  - Circulatory collapse [Unknown]
  - Behavioural and psychiatric symptoms of dementia [Not Recovered/Not Resolved]

NARRATIVE: CASE EVENT DATE: 201412
